FAERS Safety Report 9129289 (Version 12)
Quarter: 2015Q1

REPORT INFORMATION
  Report Type: Report from Study
  Country: CA (occurrence: CA)
  Receive Date: 20130228
  Receipt Date: 20150217
  Transmission Date: 20150721
  Serious: Yes (Hospitalization, Other)
  Sender: FDA-Public Use
  Company Number: CA-ROCHE-1142052

PATIENT
  Age: 56 Year
  Sex: Male
  Weight: 159 kg

DRUGS (15)
  1. RITUXAN [Suspect]
     Active Substance: RITUXIMAB
     Route: 042
     Dates: start: 20120924
  2. RITUXAN [Suspect]
     Active Substance: RITUXIMAB
     Route: 042
     Dates: start: 20130207
  3. BENADRYL [Suspect]
     Active Substance: DIPHENHYDRAMINE HYDROCHLORIDE
     Indication: RESTLESSNESS
     Route: 065
  4. METHYLPREDNISOLONE. [Concomitant]
     Active Substance: METHYLPREDNISOLONE
     Indication: PREMEDICATION
     Route: 042
     Dates: start: 20120514
  5. CAMPATH [Concomitant]
     Active Substance: ALEMTUZUMAB
  6. RITUXAN [Suspect]
     Active Substance: RITUXIMAB
     Indication: CHRONIC LYMPHOCYTIC LEUKAEMIA
     Route: 042
     Dates: start: 20120514
  7. PIPERACILLIN [Suspect]
     Active Substance: PIPERACILLIN
     Indication: PRODUCT USED FOR UNKNOWN INDICATION
     Route: 065
  8. DIPHENHYDRAMINE HCL [Concomitant]
     Active Substance: DIPHENHYDRAMINE HYDROCHLORIDE
     Indication: PREMEDICATION
     Route: 048
     Dates: start: 20140514
  9. ALLOPURINOL. [Concomitant]
     Active Substance: ALLOPURINOL
  10. TYLENOL [Concomitant]
     Active Substance: ACETAMINOPHEN
  11. ACETAMINOPHEN. [Concomitant]
     Active Substance: ACETAMINOPHEN
     Route: 065
  12. TELMISARTAN. [Concomitant]
     Active Substance: TELMISARTAN
  13. ACETAMINOPHEN. [Concomitant]
     Active Substance: ACETAMINOPHEN
     Route: 048
     Dates: start: 20120514
  14. LEUKERAN [Concomitant]
     Active Substance: CHLORAMBUCIL
     Dosage: 6 TABS/DAY
     Route: 065
  15. PREDNISONE. [Concomitant]
     Active Substance: PREDNISONE

REACTIONS (15)
  - Infection [Recovered/Resolved]
  - Nausea [Recovered/Resolved]
  - Local swelling [Not Recovered/Not Resolved]
  - Pyrexia [Unknown]
  - Sleep apnoea syndrome [Unknown]
  - Restlessness [Unknown]
  - Infusion related reaction [Unknown]
  - Rectal abscess [Recovered/Resolved]
  - Nasopharyngitis [Not Recovered/Not Resolved]
  - Chronic lymphocytic leukaemia recurrent [Not Recovered/Not Resolved]
  - Pneumonia [Unknown]
  - Oxygen saturation decreased [Unknown]
  - Somnolence [Unknown]
  - Hypersensitivity [Unknown]
  - Cellulitis [Recovered/Resolved]

NARRATIVE: CASE EVENT DATE: 20120924
